FAERS Safety Report 6466278-8 (Version None)
Quarter: 2009Q4

REPORT INFORMATION
  Report Type: 
  Country: None (occurrence: None)
  Receive Date: 20091202
  Receipt Date: 20091120
  Transmission Date: 20100525
  Serious: Yes (Hospitalization)
  Sender: FDA-Public Use
  Company Number: IT-ROCHE-647675

PATIENT
  Sex: Male

DRUGS (5)
  1. PEGASYS [Suspect]
     Indication: HEPATITIS C
     Route: 058
     Dates: start: 20081205, end: 20090703
  2. EXJADE [Suspect]
     Indication: HAEMOSIDEROSIS
     Dosage: DRUG NAME REPORTED AS: DEFERASIROX/ DEXJADE
     Route: 048
  3. EXJADE [Suspect]
     Route: 048
     Dates: start: 20040722, end: 20090709
  4. GADOBUTROL [Concomitant]
     Indication: NUCLEAR MAGNETIC RESONANCE IMAGING
     Dates: start: 20090521, end: 20090521
  5. CACIT [Concomitant]
     Dates: start: 20070110

REACTIONS (1)
  - ANAEMIA HAEMOLYTIC AUTOIMMUNE [None]
